FAERS Safety Report 8538457-7 (Version None)
Quarter: 2012Q3

REPORT INFORMATION
  Report Type: 
  Country: None (occurrence: None)
  Receive Date: 20120726
  Receipt Date: 20120719
  Transmission Date: 20120928
  Serious: Yes (Life-Threatening, Disabling)
  Sender: FDA-Public Use
  Company Number: US-CELGENEUS-163-21880-12070133

PATIENT
  Sex: Female

DRUGS (7)
  1. THALOMID [Suspect]
     Dosage: 50 MILLIGRAM
     Route: 048
     Dates: start: 20100701
  2. FENOFIBRATE [Concomitant]
     Indication: DRUG THERAPY
     Dosage: 54 MILLIGRAM
     Route: 048
     Dates: start: 20100701, end: 20100701
  3. LAPATINIB [Concomitant]
     Dosage: 120 MILLIGRAM
     Route: 048
     Dates: start: 20110201, end: 20120701
  4. CELEBREX [Concomitant]
     Indication: DRUG THERAPY
     Dosage: 200 MILLIGRAM
     Route: 048
     Dates: start: 20100701, end: 20100701
  5. KEPPRA [Concomitant]
     Dosage: 600 MILLIGRAM
     Route: 048
     Dates: start: 20111201
  6. THALOMID [Suspect]
     Dosage: 50 MILLIGRAM
     Route: 048
     Dates: start: 20120516, end: 20120612
  7. LEVOTHYROXINE SODIUM [Concomitant]
     Indication: HYPOTHYROIDISM
     Dosage: 150 MICROGRAM
     Route: 048
     Dates: start: 20080801

REACTIONS (1)
  - BRAIN NEOPLASM MALIGNANT [None]
